FAERS Safety Report 18114086 (Version 3)
Quarter: 2020Q4

REPORT INFORMATION
  Report Type: Spontaneous
  Country: US (occurrence: US)
  Receive Date: 20200805
  Receipt Date: 20201012
  Transmission Date: 20210113
  Serious: Yes (Other)
  Sender: FDA-Public Use
  Company Number: US-PFIZER INC-2020295741

PATIENT
  Age: 68 Year
  Sex: Female

DRUGS (5)
  1. BELIMUMAB [Suspect]
     Active Substance: BELIMUMAB
     Indication: VASCULITIS
     Dosage: UNK
  2. CYCLOPHOSPHAMIDE. [Suspect]
     Active Substance: CYCLOPHOSPHAMIDE
     Indication: VASCULITIS
     Dosage: UNK
  3. AZATHIOPRINE. [Suspect]
     Active Substance: AZATHIOPRINE
     Indication: VASCULITIS
     Dosage: UNK
  4. RITUXIMAB. [Suspect]
     Active Substance: RITUXIMAB
     Indication: VASCULITIS
     Dosage: UNK
  5. IMMUNOGLOBULINS [Concomitant]
     Indication: IMMUNODEFICIENCY COMMON VARIABLE
     Dosage: UNK

REACTIONS (5)
  - Skin infection [Unknown]
  - Condition aggravated [Unknown]
  - Pneumonia [Unknown]
  - Neutropenia [Unknown]
  - Sinusitis [Unknown]
